FAERS Safety Report 4578633-1 (Version None)
Quarter: 2005Q1

REPORT INFORMATION
  Report Type: 
  Country: None (occurrence: None)
  Receive Date: 20050211
  Receipt Date: 20050209
  Transmission Date: 20050727
  Serious: Yes (Other)
  Sender: FDA-Public Use
  Company Number: AU-MERCK-0502AUS00072

PATIENT
  Age: 74 Year
  Sex: Female

DRUGS (2)
  1. ALDOMET [Suspect]
     Indication: BLOOD PRESSURE
     Route: 048
     Dates: start: 19840101, end: 20040301
  2. ASPIRIN [Concomitant]
     Route: 065
     Dates: start: 19960101

REACTIONS (2)
  - CEREBROVASCULAR ACCIDENT [None]
  - OEDEMA PERIPHERAL [None]
